FAERS Safety Report 18763472 (Version 1)
Quarter: 2021Q1

REPORT INFORMATION
  Report Type: Spontaneous
  Country: US (occurrence: US)
  Receive Date: 20210120
  Receipt Date: 20210120
  Transmission Date: 20210419
  Serious: Yes (Other)
  Sender: FDA-Public Use
  Company Number: US-JNJFOC-20210117514

PATIENT
  Age: 76 Year
  Sex: Male
  Weight: 65.83 kg

DRUGS (3)
  1. SPRAVATO [Suspect]
     Active Substance: ESKETAMINE
     Dates: start: 20200508, end: 202012
  2. SPRAVATO [Suspect]
     Active Substance: ESKETAMINE
     Dosage: 19 TOTAL DOSES
     Dates: start: 202012, end: 20210108
  3. SPRAVATO [Suspect]
     Active Substance: ESKETAMINE
     Indication: DEPRESSION
     Dosage: 1 TOTAL DOSE
     Dates: start: 20200506, end: 20200506

REACTIONS (3)
  - Inappropriate schedule of product administration [Recovered/Resolved]
  - Depression [Recovered/Resolved]
  - Mental impairment [Unknown]

NARRATIVE: CASE EVENT DATE: 202010
